FAERS Safety Report 23186911 (Version 2)
Quarter: 2024Q1

REPORT INFORMATION
  Report Type: Spontaneous
  Country: US (occurrence: US)
  Receive Date: 20231115
  Receipt Date: 20240123
  Transmission Date: 20240410
  Serious: Yes (Other)
  Sender: FDA-Public Use
  Company Number: US-BAYER-2023A161956

PATIENT
  Sex: Male

DRUGS (3)
  1. JIVI [Suspect]
     Active Substance: DAMOCTOCOG ALFA PEGOL
     Dosage: 500 UNK
     Route: 042
     Dates: start: 201502
  2. JIVI [Suspect]
     Active Substance: DAMOCTOCOG ALFA PEGOL
     Dosage: 2000 IU
     Route: 042
     Dates: start: 201502
  3. JIVI [Suspect]
     Active Substance: DAMOCTOCOG ALFA PEGOL
     Dosage: 2800 (2520-3080) SLOW IV PUSH EVERY MONDAY AND THURSDAY

REACTIONS (2)
  - Haemarthrosis [None]
  - Arthropathy [None]
